FAERS Safety Report 25648036 (Version 1)
Quarter: 2025Q3

REPORT INFORMATION
  Report Type: Spontaneous
  Country: US (occurrence: US)
  Receive Date: 20250806
  Receipt Date: 20250806
  Transmission Date: 20251021
  Serious: Yes (Hospitalization)
  Sender: STRIDES
  Company Number: US-STRIDES PHARMA UK LTD.-2025SP009733

PATIENT
  Age: 84 Year
  Sex: Female

DRUGS (5)
  1. PREDNISONE [Suspect]
     Active Substance: PREDNISONE
     Indication: Immune-mediated myositis
     Route: 048
  2. PREDNISONE [Suspect]
     Active Substance: PREDNISONE
     Route: 065
  3. METHYLPREDNISOLONE [Concomitant]
     Active Substance: METHYLPREDNISOLONE
     Indication: Immune-mediated myositis
     Route: 065
  4. Immunoglobulin [Concomitant]
     Indication: Immune-mediated myositis
     Route: 065
  5. Immunoglobulin [Concomitant]
     Route: 065

REACTIONS (2)
  - Asthenia [Recovering/Resolving]
  - Off label use [Unknown]
